FAERS Safety Report 19803761 (Version 1)
Quarter: 2021Q3

REPORT INFORMATION
  Report Type: Spontaneous
  Country: US (occurrence: US)
  Receive Date: 20210908
  Receipt Date: 20210908
  Transmission Date: 20211014
  Serious: No
  Sender: FDA-Public Use
  Company Number: None

PATIENT
  Age: 56 Year
  Sex: Female

DRUGS (1)
  1. LETAIRIS [Suspect]
     Active Substance: AMBRISENTAN
     Dates: start: 20200902

REACTIONS (6)
  - Depression [None]
  - Dizziness [None]
  - Pain [None]
  - Headache [None]
  - Stress [None]
  - Anxiety [None]

NARRATIVE: CASE EVENT DATE: 20210908
